FAERS Safety Report 10037294 (Version 2)
Quarter: 2014Q2

REPORT INFORMATION
  Report Type: Spontaneous
  Country: JP (occurrence: JP)
  Receive Date: 20140326
  Receipt Date: 20140423
  Transmission Date: 20141212
  Serious: Yes (Hospitalization, Other)
  Sender: FDA-Public Use
  Company Number: JP-ROCHE-1367178

PATIENT
  Age: 8 Year
  Sex: Female
  Weight: 26.3 kg

DRUGS (8)
  1. TAMIFLU [Suspect]
     Indication: INFLUENZA
     Route: 048
     Dates: start: 20140201, end: 20140202
  2. COCARL [Concomitant]
     Indication: INFLUENZA
     Route: 048
     Dates: start: 20140201, end: 20140202
  3. ASPIRIN [Concomitant]
     Route: 048
     Dates: start: 20080611
  4. LENIMEC [Concomitant]
     Route: 048
     Dates: start: 20080611
  5. WARFARIN [Concomitant]
     Route: 048
     Dates: start: 20090806
  6. RESPLEN [Concomitant]
     Route: 048
     Dates: start: 20140130, end: 20140202
  7. CARBOCISTEINE [Concomitant]
     Route: 048
     Dates: start: 20140130, end: 20140202
  8. ALESION [Concomitant]
     Route: 048
     Dates: start: 20140130, end: 20140202

REACTIONS (3)
  - Drug-induced liver injury [Recovering/Resolving]
  - Atrial tachycardia [Recovering/Resolving]
  - Drug eruption [Recovering/Resolving]
